FAERS Safety Report 22389324 (Version 1)
Quarter: 2023Q2

REPORT INFORMATION
  Report Type: Report from Study
  Country: MX (occurrence: MX)
  Receive Date: 20230531
  Receipt Date: 20230531
  Transmission Date: 20230722
  Serious: Yes (Other)
  Sender: FDA-Public Use
  Company Number: MX-002147023-NVSC2023MX111161

PATIENT
  Sex: Female
  Weight: 75 kg

DRUGS (3)
  1. TEGRETOL [Suspect]
     Active Substance: CARBAMAZEPINE
     Indication: Seizure
     Dosage: 1 DOSAGE FORM, QD (1 OF 400 MG), QD
     Route: 048
     Dates: start: 1996, end: 2008
  2. TEGRETOL [Suspect]
     Active Substance: CARBAMAZEPINE
     Dosage: 1 DOSAGE FORM, QD (1 OF 400 MG), QD (1 TABLET OF TEGRETOL 400 MG AT 7:00 AM AND ANOTHER ONE AT 15:00
     Route: 048
     Dates: start: 2008
  3. TEGRETOL [Suspect]
     Active Substance: CARBAMAZEPINE
     Indication: Seizure
     Dosage: 1 DOSAGE FORM, QD (1 OF 200 MG) AT 19:00 HS (1 AT 7PM)
     Route: 048
     Dates: start: 1996

REACTIONS (6)
  - Intellectual disability [Recovered/Resolved]
  - Glucose tolerance impaired [Recovering/Resolving]
  - Hypertension [Unknown]
  - Diarrhoea [Recovered/Resolved]
  - Fall [Unknown]
  - Therapeutic product effect incomplete [Unknown]

NARRATIVE: CASE EVENT DATE: 19960101
